FAERS Safety Report 18553199 (Version 1)
Quarter: 2020Q4

REPORT INFORMATION
  Report Type: Spontaneous
  Country: US (occurrence: US)
  Receive Date: 20201127
  Receipt Date: 20201127
  Transmission Date: 20210114
  Serious: No
  Sender: FDA-Public Use
  Company Number: US-JNJFOC-20201132356

PATIENT

DRUGS (2)
  1. AFRIN [OXYMETAZOLINE] [Concomitant]
     Indication: SLEEP DISORDER THERAPY
     Route: 065
  2. SUDAFED 24 HOUR [Suspect]
     Active Substance: PSEUDOEPHEDRINE HYDROCHLORIDE
     Indication: UNEVALUABLE EVENT
     Route: 065

REACTIONS (1)
  - Therapeutic product effect incomplete [Unknown]
